APPROVED DRUG PRODUCT: DEXTROSE 10% IN PLASTIC CONTAINER
Active Ingredient: DEXTROSE
Strength: 10GM/100ML
Dosage Form/Route: INJECTABLE;INJECTION
Application: N019626 | Product #004 | TE Code: AP
Applicant: B BRAUN MEDICAL INC
Approved: Feb 2, 1988 | RLD: Yes | RS: Yes | Type: RX